FAERS Safety Report 8187703-0 (Version None)
Quarter: 2012Q1

REPORT INFORMATION
  Report Type: 
  Country: None (occurrence: None)
  Receive Date: 20120306
  Receipt Date: 20111209
  Transmission Date: 20120608
  Serious: Yes (Hospitalization)
  Sender: FDA-Public Use
  Company Number: US-GLAXOSMITHKLINE-A0957539A

PATIENT
  Age: 62 Year
  Sex: Female

DRUGS (12)
  1. TIZANIDINE HCL [Concomitant]
  2. NORVASC [Concomitant]
  3. ASPIRIN [Concomitant]
  4. POTASSIUM CHLORIDE [Concomitant]
  5. TOPROL-XL [Concomitant]
  6. ISOSORBIDE DINITRATE [Concomitant]
  7. PLAVIX [Concomitant]
  8. LAMICTAL [Suspect]
     Indication: CONVULSION
     Dosage: 150MG TWICE PER DAY
     Route: 048
     Dates: start: 20080101
  9. PEPCID [Concomitant]
  10. HYDROCHLOROTHIAZIDE [Concomitant]
  11. TOPAMAX [Concomitant]
  12. PRISTIQ [Concomitant]

REACTIONS (1)
  - CONVULSION [None]
